FAERS Safety Report 5917303-1 (Version None)
Quarter: 2008Q4

REPORT INFORMATION
  Report Type: 
  Country: None (occurrence: None)
  Receive Date: 20081014
  Receipt Date: 20081002
  Transmission Date: 20090506
  Serious: Yes (Hospitalization)
  Sender: FDA-Public Use
  Company Number: FR-AMGEN-US275047

PATIENT
  Sex: Female
  Weight: 60 kg

DRUGS (6)
  1. ENBREL [Suspect]
     Indication: RHEUMATOID ARTHRITIS
     Route: 058
     Dates: start: 20080221
  2. ENBREL [Suspect]
     Route: 058
     Dates: start: 20080101
  3. METHOTREXATE [Suspect]
     Indication: RHEUMATOID ARTHRITIS
     Dosage: UNKNOWN
     Route: 065
     Dates: start: 20080328
  4. CORTANCYL [Suspect]
     Indication: RHEUMATOID ARTHRITIS
     Dosage: UNKNOWN
     Route: 065
     Dates: start: 20080323
  5. ACETAMINOPHEN AND TRAMADOL HCL [Concomitant]
     Indication: RHEUMATOID ARTHRITIS
     Dosage: UNKNOWN
     Route: 065
     Dates: start: 20080201
  6. FOSAVANCE [Concomitant]
     Indication: OSTEOPOROSIS PROPHYLAXIS
     Dosage: UNKNOWN
     Route: 065
     Dates: start: 20060101

REACTIONS (5)
  - CYSTITIS [None]
  - ERYTHEMA [None]
  - PRURITUS [None]
  - PYREXIA [None]
  - RHEUMATOID ARTHRITIS [None]
